FAERS Safety Report 9891658 (Version 2)
Quarter: 2014Q1

REPORT INFORMATION
  Report Type: Other
  Country: JP (occurrence: JP)
  Receive Date: 20140212
  Receipt Date: 20140228
  Transmission Date: 20141002
  Serious: No
  Sender: FDA-Public Use
  Company Number: JP-SUCAMPO PHARMA AMERICAS, INC-SPI201400107

PATIENT
  Age: 54 Year
  Sex: Female
  Weight: 42.5 kg

DRUGS (13)
  1. AMITIZA [Suspect]
     Indication: CONSTIPATION
     Dosage: 24 MCG, QD
     Route: 048
     Dates: end: 20130610
  2. SENNOSIDE [Suspect]
     Indication: CONSTIPATION
     Dosage: 60 MG, QD
     Route: 048
  3. ADJUST-A [Suspect]
     Indication: CONSTIPATION
     Dosage: 240 MG, QD
     Route: 048
  4. UNKNOWN DRUG [Concomitant]
     Indication: HYPERPARATHYROIDISM SECONDARY
     Dosage: UNK
     Route: 048
  5. UNKNOWN DRUG [Concomitant]
     Indication: DIARRHOEA
     Dosage: 1 G, TID
     Route: 048
  6. PROCYLIN [Concomitant]
     Indication: PERIPHERAL COLDNESS
     Dosage: 20 MCG, TID
     Route: 048
  7. FOSRENOL [Concomitant]
     Indication: HYPERPARATHYROIDISM SECONDARY
     Dosage: 250 MG, TID
     Route: 048
  8. PREDONINE-1 [Concomitant]
     Indication: KIDNEY TRANSPLANT REJECTION
     Dosage: 5 MG, QD
     Route: 048
  9. BAYASPIRIN [Concomitant]
     Indication: ANGINA PECTORIS
     Dosage: 100 MG, QD
     Route: 048
  10. OMEPRAL [Concomitant]
     Indication: GASTRITIS
     Dosage: 20 MG, QD
     Route: 048
  11. BAKTAR [Concomitant]
     Indication: PROPHYLAXIS
     Dosage: 480 MG, QD
     Route: 048
  12. CRESTOR [Concomitant]
     Indication: LIPIDS ABNORMAL
     Dosage: 2.5 MG, QD
     Route: 048
  13. ZYLORIC [Concomitant]
     Indication: HYPERURICAEMIA
     Dosage: 100 MG, QD
     Route: 048

REACTIONS (1)
  - Abdominal pain [Recovered/Resolved]
